FAERS Safety Report 6758866-6 (Version None)
Quarter: 2010Q2

REPORT INFORMATION
  Report Type: 
  Country: None (occurrence: None)
  Receive Date: 20100607
  Receipt Date: 20100526
  Transmission Date: 20101027
  Serious: Yes (Other)
  Sender: FDA-Public Use
  Company Number: PHHY2010BR34212

PATIENT
  Sex: Male

DRUGS (4)
  1. EXFORGE [Suspect]
     Dosage: 80/5 MG DAILY
     Route: 048
     Dates: start: 20070101, end: 20100526
  2. INFLUENZA VIRUS VACCINE - PANDEMIC INN (NVD) [Suspect]
     Indication: IMMUNISATION
  3. METFORMIN [Concomitant]
     Dosage: 850 MG, UNK
  4. GEMFIBROZIL [Concomitant]
     Dosage: 600 MG, UNK

REACTIONS (3)
  - AGEUSIA [None]
  - METABOLIC SYNDROME [None]
  - WEIGHT DECREASED [None]
